FAERS Safety Report 8504987-7 (Version None)
Quarter: 2012Q3

REPORT INFORMATION
  Report Type: 
  Country: None (occurrence: None)
  Receive Date: 20120712
  Receipt Date: 20120627
  Transmission Date: 20120928
  Serious: Yes (Life-Threatening)
  Sender: FDA-Public Use
  Company Number: DE-BAYER-2012-049978

PATIENT
  Sex: Female
  Weight: 170 kg

DRUGS (1)
  1. BETASERON [Suspect]
     Indication: ENCEPHALOMYELITIS
     Dosage: 250 ?G/ML, QOD
     Dates: start: 20111201, end: 20120601

REACTIONS (2)
  - WEIGHT DECREASED [None]
  - GASTRITIS [None]
